FAERS Safety Report 5864554-0 (Version None)
Quarter: 2008Q3

REPORT INFORMATION
  Report Type: 
  Country: None (occurrence: None)
  Receive Date: 20080829
  Receipt Date: 20080714
  Transmission Date: 20090109
  Serious: No
  Sender: FDA-Public Use
  Company Number: US-ABBOTT-08P-163-0462388-00

PATIENT
  Sex: Female

DRUGS (1)
  1. SIMCOR [Suspect]
     Indication: HYPERCHOLESTEROLAEMIA
     Dosage: 1000/20MG
     Route: 048
     Dates: start: 20080712

REACTIONS (3)
  - BURNING SENSATION [None]
  - FLUSHING [None]
  - SLEEP DISORDER [None]
